FAERS Safety Report 7767759-7 (Version None)
Quarter: 2011Q3

REPORT INFORMATION
  Report Type: 
  Country: None (occurrence: None)
  Receive Date: 20110922
  Receipt Date: 20110211
  Transmission Date: 20111222
  Serious: No
  Sender: FDA-Public Use
  Company Number: US-ASTRAZENECA-2011SE08388

PATIENT
  Age: 37 Year
  Sex: Male
  Weight: 86.2 kg

DRUGS (5)
  1. LEXAPRO [Concomitant]
  2. GABAPENTIN [Concomitant]
  3. SEROQUEL XR [Suspect]
     Indication: POST-TRAUMATIC STRESS DISORDER
     Route: 048
     Dates: start: 20110201
  4. SEROQUEL XR [Suspect]
     Indication: DEPRESSION
     Route: 048
     Dates: start: 20110201
  5. SEROQUEL XR [Suspect]
     Indication: ANXIETY
     Route: 048
     Dates: start: 20110201

REACTIONS (1)
  - HYPERSOMNIA [None]
